FAERS Safety Report 5701965-8 (Version None)
Quarter: 2008Q2

REPORT INFORMATION
  Report Type: 
  Country: None (occurrence: None)
  Receive Date: 20080411
  Receipt Date: 20070328
  Transmission Date: 20081010
  Serious: No
  Sender: FDA-Public Use
  Company Number: US-ABBOTT-07P-163-0363987-00

PATIENT
  Sex: Male
  Weight: 95 kg

DRUGS (4)
  1. DEPAKOTE [Suspect]
     Indication: MANIA
     Route: 048
     Dates: start: 20070101
  2. QUETIAPINE FUMARATE [Concomitant]
     Indication: MANIA
     Route: 048
     Dates: start: 20070105
  3. SYMBYAX [Concomitant]
     Indication: MANIA
     Route: 048
     Dates: start: 20070105
  4. RISPERIDONE [Concomitant]
     Indication: MANIA
     Route: 048
     Dates: start: 20070105

REACTIONS (2)
  - LETHARGY [None]
  - TREMOR [None]
